FAERS Safety Report 8613580-7 (Version None)
Quarter: 2012Q3

REPORT INFORMATION
  Report Type: 
  Country: None (occurrence: None)
  Receive Date: 20120823
  Receipt Date: 20120816
  Transmission Date: 20120928
  Serious: Yes (Hospitalization, Other)
  Sender: FDA-Public Use
  Company Number: AR-AMGEN-ARGSP2012052710

PATIENT
  Age: 43 Year
  Sex: Female

DRUGS (2)
  1. ENBREL [Suspect]
     Indication: RHEUMATOID ARTHRITIS
     Dosage: 50 MG, EVERY 15 DAYS
     Dates: start: 20070303, end: 20120501
  2. METHOTREXATE [Suspect]
     Dosage: UNK

REACTIONS (4)
  - IMMUNE SYSTEM DISORDER [None]
  - WHITE BLOOD CELL COUNT INCREASED [None]
  - APPLICATION SITE PAIN [None]
  - BRONCHOPNEUMONIA [None]
